FAERS Safety Report 8007106-9 (Version None)
Quarter: 2011Q4

REPORT INFORMATION
  Report Type: 
  Country: None (occurrence: None)
  Receive Date: 20111227
  Receipt Date: 20111221
  Transmission Date: 20120403
  Serious: Yes (Hospitalization)
  Sender: FDA-Public Use
  Company Number: IT-PFIZER INC-2011311311

PATIENT
  Age: 86 Year
  Sex: Female

DRUGS (5)
  1. PIPERACILLIN AND TAZOBACTAM [Concomitant]
  2. ZYVOX [Suspect]
     Indication: BRONCHOPNEUMONIA
     Dosage: 600 MG, DAILY
     Route: 042
     Dates: start: 20110912, end: 20110914
  3. MERREM [Concomitant]
  4. LASIX [Concomitant]
  5. LEVOFLOXACIN [Concomitant]

REACTIONS (4)
  - HEPATIC ENZYME INCREASED [None]
  - ALANINE AMINOTRANSFERASE INCREASED [None]
  - ASPARTATE AMINOTRANSFERASE INCREASED [None]
  - GAMMA-GLUTAMYLTRANSFERASE INCREASED [None]
